FAERS Safety Report 21213196 (Version 2)
Quarter: 2022Q3

REPORT INFORMATION
  Report Type: Spontaneous
  Country: PH (occurrence: PH)
  Receive Date: 20220815
  Receipt Date: 20220916
  Transmission Date: 20221027
  Serious: Yes (Death, Other)
  Sender: FDA-Public Use
  Company Number: PH-TAKEDA-2022TUS054909

PATIENT
  Age: 24 Year
  Sex: Male

DRUGS (4)
  1. ELAPRASE [Suspect]
     Active Substance: IDURSULFASE
     Indication: Mucopolysaccharidosis II
     Dosage: 0.5 MILLIGRAM/KILOGRAM
     Route: 065
     Dates: start: 20171023, end: 20220510
  2. ELAPRASE [Suspect]
     Active Substance: IDURSULFASE
     Dosage: 0.5 MILLIGRAM/KILOGRAM
     Route: 065
     Dates: start: 20180308, end: 20220510
  3. ENALAPRIL [Concomitant]
     Active Substance: ENALAPRIL
     Indication: Mitral valve incompetence
  4. ENALAPRIL [Concomitant]
     Active Substance: ENALAPRIL
     Indication: Left ventricular dysfunction

REACTIONS (5)
  - Cardiac disorder [Fatal]
  - Respiratory disorder [Fatal]
  - Pneumonia [Fatal]
  - Pallor [Unknown]
  - Fall [Unknown]

NARRATIVE: CASE EVENT DATE: 20190101
